FAERS Safety Report 7815876-5 (Version None)
Quarter: 2011Q4

REPORT INFORMATION
  Report Type: 
  Country: None (occurrence: None)
  Receive Date: 20111014
  Receipt Date: 20111007
  Transmission Date: 20120403
  Serious: Yes (Other)
  Sender: FDA-Public Use
  Company Number: US-SANOFI-AVENTIS-2011SA046588

PATIENT
  Age: 72 Year
  Sex: Female

DRUGS (3)
  1. AMARYL [Suspect]
     Route: 048
  2. OPTICLICK [Suspect]
  3. LANTUS [Suspect]
     Dosage: DOSE:20 UNIT(S)
     Route: 058

REACTIONS (3)
  - PRODUCT QUALITY ISSUE [None]
  - BLOOD GLUCOSE INCREASED [None]
  - CATARACT [None]
